FAERS Safety Report 10823374 (Version 1)
Quarter: 2015Q1

REPORT INFORMATION
  Report Type: Report from Study
  Country: US (occurrence: US)
  Receive Date: 20150218
  Receipt Date: 20150218
  Transmission Date: 20150721
  Serious: No
  Sender: FDA-Public Use
  Company Number: US-ABBVIE-14K-163-1308251-00

PATIENT
  Age: 60 Year
  Sex: Male

DRUGS (1)
  1. HUMIRA [Suspect]
     Active Substance: ADALIMUMAB
     Indication: RHEUMATOID ARTHRITIS
     Route: 065
     Dates: start: 201311

REACTIONS (3)
  - Injury associated with device [Unknown]
  - Incorrect dose administered [Unknown]
  - Wrong technique in drug usage process [Unknown]

NARRATIVE: CASE EVENT DATE: 20141109
